FAERS Safety Report 7211155-8 (Version None)
Quarter: 2011Q1

REPORT INFORMATION
  Report Type: 
  Country: None (occurrence: None)
  Receive Date: 20110105
  Receipt Date: 20101228
  Transmission Date: 20110831
  Serious: Yes (Hospitalization, Other)
  Sender: FDA-Public Use
  Company Number: CZ-ABBOTT-10P-217-0693965-00

PATIENT
  Sex: Male

DRUGS (3)
  1. AMOXICILLIN [Concomitant]
     Indication: PRODUCT USED FOR UNKNOWN INDICATION
     Route: 048
     Dates: start: 20101221, end: 20101226
  2. NIMESULID [Concomitant]
     Indication: PRODUCT USED FOR UNKNOWN INDICATION
     Dates: start: 20090101, end: 20101226
  3. HUMIRA [Suspect]
     Indication: ANKYLOSING SPONDYLITIS
     Route: 058
     Dates: start: 20100305, end: 20101204

REACTIONS (2)
  - INFECTION [None]
  - BLOOD CREATININE INCREASED [None]
